FAERS Safety Report 8407211-9 (Version None)
Quarter: 2012Q2

REPORT INFORMATION
  Report Type: 
  Country: None (occurrence: None)
  Receive Date: 20120604
  Receipt Date: 20120523
  Transmission Date: 20120825
  Serious: Yes (Hospitalization)
  Sender: FDA-Public Use
  Company Number: GB-MEDIMMUNE-MEDI-0015284

PATIENT
  Age: 8 Week
  Sex: Male
  Weight: 6 kg

DRUGS (6)
  1. RANITIDINE [Concomitant]
     Indication: CYSTIC FIBROSIS
     Route: 048
  2. FLUCLOXACILLIN MAGNESIUM [Concomitant]
     Indication: CYSTIC FIBROSIS
     Route: 048
  3. SYNAGIS [Suspect]
     Indication: ANTIVIRAL PROPHYLAXIS
     Dosage: TWO DOSES OF DIFFERENT STRENGTHS
     Route: 030
  4. PANCREATIN TRIPLE STRENGTH CAP [Concomitant]
     Indication: CYSTIC FIBROSIS
     Route: 048
  5. AMOXICILLIN AND CLAVULANATE POTASSIUM [Concomitant]
     Indication: CYSTIC FIBROSIS
     Route: 048
  6. AQUADEK [Concomitant]
     Indication: CYSTIC FIBROSIS
     Route: 048

REACTIONS (6)
  - BRONCHIOLITIS [None]
  - RESPIRATORY SYNCYTIAL VIRUS BRONCHIOLITIS [None]
  - WHEEZING [None]
  - LOWER RESPIRATORY TRACT INFECTION [None]
  - FEEDING DISORDER NEONATAL [None]
  - INFANTILE SPITTING UP [None]
